FAERS Safety Report 20708094 (Version 1)
Quarter: 2022Q2

REPORT INFORMATION
  Report Type: Spontaneous
  Country: US (occurrence: US)
  Receive Date: 20220414
  Receipt Date: 20220414
  Transmission Date: 20220720
  Serious: Yes (Life-Threatening, Hospitalization, Other)
  Sender: FDA-Public Use
  Company Number: US-AMGEN-USASP2022062206

PATIENT
  Age: 13 Year
  Sex: Male

DRUGS (3)
  1. FILGRASTIM [Suspect]
     Active Substance: FILGRASTIM
     Indication: Cytopenia
     Dosage: UNK
     Route: 065
  2. FILGRASTIM [Suspect]
     Active Substance: FILGRASTIM
     Indication: Off label use
  3. RITUXIMAB [Concomitant]
     Active Substance: RITUXIMAB

REACTIONS (7)
  - Cerebral toxoplasmosis [Recovering/Resolving]
  - Gastrointestinal haemorrhage [Unknown]
  - Pancytopenia [Unknown]
  - Transplant dysfunction [Unknown]
  - Partial seizures [Unknown]
  - Off label use [Unknown]
  - Lymphadenopathy [Unknown]
